FAERS Safety Report 5269880-4 (Version None)
Quarter: 2007Q1

REPORT INFORMATION
  Report Type: 
  Country: None (occurrence: None)
  Receive Date: 20070320
  Receipt Date: 20070313
  Transmission Date: 20070707
  Serious: Yes (Hospitalization)
  Sender: FDA-Public Use
  Company Number: FR-GLAXOSMITHKLINE-B0461855A

PATIENT
  Age: 48 Year
  Sex: Male
  Weight: 75 kg

DRUGS (16)
  1. AZATHIOPRINE SODIUM [Suspect]
     Dosage: 75MG PER DAY
     Route: 048
     Dates: start: 20070126, end: 20070211
  2. AMOXICILLIN + CLAVULANATE POTASSIUM [Suspect]
     Route: 048
     Dates: start: 20070209, end: 20070211
  3. COLCHICINE [Concomitant]
  4. KEPPRA [Concomitant]
  5. DEPAKENE [Concomitant]
  6. ATHYMIL [Concomitant]
  7. ZOLOFT [Concomitant]
  8. IMOVANE [Concomitant]
  9. ACUPAN [Concomitant]
  10. SPASFON [Concomitant]
  11. RENITEC [Concomitant]
  12. LOXEN [Concomitant]
  13. HYPERIUM [Concomitant]
  14. PLAVIX [Concomitant]
  15. BACTRIM [Concomitant]
  16. CALCIDOSE [Concomitant]

REACTIONS (8)
  - ALANINE AMINOTRANSFERASE INCREASED [None]
  - ASPARTATE AMINOTRANSFERASE INCREASED [None]
  - BLOOD ALKALINE PHOSPHATASE INCREASED [None]
  - GAMMA-GLUTAMYLTRANSFERASE INCREASED [None]
  - GENERAL PHYSICAL HEALTH DETERIORATION [None]
  - INFLAMMATION [None]
  - LYMPHOPENIA [None]
  - PYREXIA [None]
